FAERS Safety Report 7550123-3 (Version None)
Quarter: 2011Q2

REPORT INFORMATION
  Report Type: 
  Country: None (occurrence: None)
  Receive Date: 20110615
  Receipt Date: 20110606
  Transmission Date: 20111010
  Serious: Yes (Other)
  Sender: FDA-Public Use
  Company Number: US-CEPHALON-2011002880

PATIENT
  Sex: Female

DRUGS (7)
  1. MS CONTIN [Concomitant]
  2. LYRICA [Concomitant]
  3. RELAFEN [Concomitant]
  4. ENBREL [Concomitant]
     Dates: end: 20080101
  5. IMURAN [Concomitant]
  6. OXYCONTIN [Concomitant]
  7. ACTIQ [Suspect]
     Indication: RHEUMATOID ARTHRITIS
     Route: 002
     Dates: start: 20050101, end: 20050101

REACTIONS (1)
  - BONE LOSS [None]
